FAERS Safety Report 9973930 (Version 2)
Quarter: 2014Q1

REPORT INFORMATION
  Report Type: Report from Study
  Country: US (occurrence: US)
  Receive Date: 20140306
  Receipt Date: 20140306
  Transmission Date: 20141002
  Serious: Yes (Other)
  Sender: FDA-Public Use
  Company Number: US-ABBVIE-12P-163-1004628-00

PATIENT
  Age: 30 Year
  Sex: Female

DRUGS (8)
  1. HUMIRA [Suspect]
     Indication: CROHN^S DISEASE
     Dates: start: 20120907, end: 20130118
  2. HUMIRA [Suspect]
     Dates: start: 20130118
  3. VITAMIN D [Concomitant]
     Indication: PRODUCT USED FOR UNKNOWN INDICATION
  4. GENTLE IRON [Concomitant]
     Indication: PRODUCT USED FOR UNKNOWN INDICATION
  5. PRENATAL VITAMINS [Concomitant]
     Indication: PRODUCT USED FOR UNKNOWN INDICATION
     Dates: start: 20121102
  6. BUDESONID [Concomitant]
     Dates: start: 201301
  7. BUDESONID [Concomitant]
  8. BUDESONID [Concomitant]

REACTIONS (5)
  - Gallbladder operation [Unknown]
  - Injection site induration [Not Recovered/Not Resolved]
  - Injection site erythema [Not Recovered/Not Resolved]
  - Crohn^s disease [Not Recovered/Not Resolved]
  - Pain [Unknown]
